FAERS Safety Report 7775074-0 (Version None)
Quarter: 2011Q3

REPORT INFORMATION
  Report Type: 
  Country: None (occurrence: None)
  Receive Date: 20110923
  Receipt Date: 20110916
  Transmission Date: 20111222
  Serious: Yes (Hospitalization)
  Sender: FDA-Public Use
  Company Number: FR-BAXTER-2011BH029785

PATIENT
  Age: 40 Year
  Sex: Male

DRUGS (2)
  1. TAMSULOSIN HCL [Concomitant]
     Indication: BLADDER DISORDER
     Route: 048
  2. CYCLOPHOSPHAMIDE [Suspect]
     Indication: MULTIPLE SCLEROSIS
     Route: 042
     Dates: start: 20110101, end: 20110511

REACTIONS (1)
  - PYELONEPHRITIS [None]
